FAERS Safety Report 25385589 (Version 4)
Quarter: 2025Q3

REPORT INFORMATION
  Report Type: Spontaneous
  Country: KR (occurrence: KR)
  Receive Date: 20250602
  Receipt Date: 20250717
  Transmission Date: 20251021
  Serious: Yes (Hospitalization)
  Sender: SAMSUNG BIOEPIS
  Company Number: KR-SAMSUNG BIOEPIS-SB-2025-18957

PATIENT
  Age: 75 Year
  Sex: Female
  Weight: 64.2 kg

DRUGS (18)
  1. TRASTUZUMAB [Suspect]
     Active Substance: TRASTUZUMAB
     Indication: Gallbladder cancer
     Route: 042
     Dates: start: 20240820, end: 20250415
  2. NIVOLUMAB [Suspect]
     Active Substance: NIVOLUMAB
     Indication: Gallbladder cancer
     Route: 042
     Dates: start: 20240820, end: 20250415
  3. GEMCITABINE [Suspect]
     Active Substance: GEMCITABINE
     Indication: Gallbladder cancer
     Route: 042
     Dates: start: 20240820, end: 20241217
  4. CISPLATIN [Suspect]
     Active Substance: CISPLATIN
     Indication: Gallbladder cancer
     Route: 042
     Dates: start: 20240820, end: 20241217
  5. DEXILANT [Concomitant]
     Active Substance: DEXLANSOPRAZOLE
     Indication: Product used for unknown indication
     Dosage: CAPSULE
     Dates: start: 20250524
  6. DICHLOZID [Concomitant]
     Indication: Product used for unknown indication
     Dates: start: 20240723
  7. IRBESARTAN [Concomitant]
     Active Substance: IRBESARTAN
     Indication: Product used for unknown indication
     Dates: start: 20250512
  8. NEBIVOLOL HYDROCHLORIDE [Concomitant]
     Active Substance: NEBIVOLOL HYDROCHLORIDE
     Indication: Product used for unknown indication
     Dates: start: 20240403
  9. URSODIOL [Concomitant]
     Active Substance: URSODIOL
     Indication: Product used for unknown indication
     Dates: start: 20241001
  10. ZOLPIDEM TARTRATE [Concomitant]
     Active Substance: ZOLPIDEM TARTRATE
     Indication: Product used for unknown indication
     Dates: start: 20240618
  11. ATIVAN [Concomitant]
     Active Substance: LORAZEPAM
     Indication: Product used for unknown indication
     Dates: start: 20240930
  12. ROVELITO [Concomitant]
     Indication: Product used for unknown indication
     Dosage: 300/20MG;
     Dates: start: 20241105, end: 20250512
  13. CHOLINE ALFOSCERATE [Concomitant]
     Active Substance: CHOLINE ALFOSCERATE
     Indication: Product used for unknown indication
     Dates: start: 20241105
  14. MAGNESIUM HYDROXIDE [Concomitant]
     Active Substance: MAGNESIUM HYDROXIDE
     Indication: Product used for unknown indication
     Dates: start: 20250325
  15. AVELOX [Concomitant]
     Active Substance: MOXIFLOXACIN HYDROCHLORIDE
     Indication: Product used for unknown indication
     Dates: start: 20250507, end: 20250514
  16. ULINASTATIN [Concomitant]
     Active Substance: ULINASTATIN
     Indication: Product used for unknown indication
     Dates: start: 20250512, end: 20250514
  17. PERATAM [CEFOPERAZONE SODIUM;SULBACTAM SODIUM] [Concomitant]
     Indication: Product used for unknown indication
     Dates: start: 20250512, end: 20250514
  18. GASTER [Concomitant]
     Active Substance: FAMOTIDINE
     Indication: Product used for unknown indication
     Dates: start: 20250512, end: 20250514

REACTIONS (3)
  - Biliary obstruction [Recovered/Resolved]
  - Cholangitis acute [Recovered/Resolved]
  - Off label use [Unknown]

NARRATIVE: CASE EVENT DATE: 20250512
